FAERS Safety Report 6179548-8 (Version None)
Quarter: 2009Q2

REPORT INFORMATION
  Report Type: 
  Country: None (occurrence: None)
  Receive Date: 20090505
  Receipt Date: 20090428
  Transmission Date: 20091009
  Serious: Yes (Other)
  Sender: FDA-Public Use
  Company Number: US-GENENTECH-282138

PATIENT
  Sex: Female

DRUGS (2)
  1. HERCEPTIN [Suspect]
     Indication: BREAST CANCER
     Dosage: UNK
     Route: 042
  2. CHEMOTHERAPY (UNK INGREDIENTS) [Concomitant]
     Indication: BREAST CANCER
     Dosage: UNK

REACTIONS (2)
  - HODGKIN'S DISEASE [None]
  - RASH PRURITIC [None]
